FAERS Safety Report 15797388 (Version 1)
Quarter: 2019Q1

REPORT INFORMATION
  Report Type: Spontaneous
  Country: US (occurrence: US)
  Receive Date: 20190108
  Receipt Date: 20190108
  Transmission Date: 20190417
  Serious: No
  Sender: FDA-Public Use
  Company Number: US-PFIZER INC-2019004872

PATIENT
  Age: 69 Year
  Sex: Female

DRUGS (1)
  1. OGEN [Suspect]
     Active Substance: ESTROPIPATE
     Dosage: UNK

REACTIONS (1)
  - Affective disorder [Unknown]
